FAERS Safety Report 20216432 (Version 1)
Quarter: 2021Q4

REPORT INFORMATION
  Report Type: Spontaneous
  Country: US (occurrence: None)
  Receive Date: 20211222
  Receipt Date: 20211222
  Transmission Date: 20220303
  Serious: Yes (Hospitalization, Other)
  Sender: FDA-Public Use
  Company Number: US-MLMSERVICE-20211201-3246853-1

PATIENT
  Age: 10 Year
  Sex: Male

DRUGS (2)
  1. AMOXICILLIN [Suspect]
     Active Substance: AMOXICILLIN
     Indication: Pharyngitis streptococcal
     Dosage: UNKNOWN
     Route: 065
  2. IBUPROFEN [Suspect]
     Active Substance: IBUPROFEN
     Indication: Pharyngitis streptococcal
     Dosage: UNKNOWN
     Route: 065

REACTIONS (2)
  - Secondary amyloidosis [Recovered/Resolved]
  - Tubulointerstitial nephritis [Recovered/Resolved]
